FAERS Safety Report 16170709 (Version 2)
Quarter: 2020Q2

REPORT INFORMATION
  Report Type: Spontaneous
  Country: US (occurrence: US)
  Receive Date: 20190408
  Receipt Date: 20200515
  Transmission Date: 20200713
  Serious: Yes (Other)
  Sender: FDA-Public Use
  Company Number: US-ELI_LILLY_AND_COMPANY-US201904003154

PATIENT
  Age: 64 Year
  Sex: Female

DRUGS (6)
  1. BASAGLAR [Suspect]
     Active Substance: INSULIN GLARGINE
     Indication: TYPE 2 DIABETES MELLITUS
     Dosage: 25 INTERNATIONAL UNIT, UNKNOWN (24-25 IU)
     Route: 065
     Dates: start: 201903
  2. BASAGLAR [Suspect]
     Active Substance: INSULIN GLARGINE
     Dosage: 18 U, UNKNOWN (16-20 UNITS, DEPENDING ON BLOOD GLUCOSE)
     Route: 058
  3. STARLIX [Concomitant]
     Active Substance: NATEGLINIDE
     Dosage: 1 DOSAGE FORM, TID, 1 CAPSULE BEFORE MEALS
     Route: 065
  4. VICTOZA [Concomitant]
     Active Substance: LIRAGLUTIDE
     Dosage: 1.8 MG, DAILY
     Route: 065
  5. STARLIX [Concomitant]
     Active Substance: NATEGLINIDE
     Indication: TYPE 2 DIABETES MELLITUS
     Dosage: UNK, BID
     Route: 065
     Dates: start: 2016
  6. VICTOZA [Concomitant]
     Active Substance: LIRAGLUTIDE
     Indication: TYPE 2 DIABETES MELLITUS
     Dosage: 1.6 IU, DAILY
     Route: 065
     Dates: start: 2016

REACTIONS (9)
  - Injection site pain [Unknown]
  - Incorrect dose administered [Unknown]
  - Blood glucose increased [Unknown]
  - Taste disorder [Unknown]
  - Decreased appetite [Unknown]
  - Tremor [Unknown]
  - Underdose [Unknown]
  - Back injury [Unknown]
  - Blood glucose decreased [Unknown]

NARRATIVE: CASE EVENT DATE: 20190402
